FAERS Safety Report 14004171 (Version 1)
Quarter: 2017Q3

REPORT INFORMATION
  Report Type: Spontaneous
  Country: US (occurrence: US)
  Receive Date: 20170922
  Receipt Date: 20170922
  Transmission Date: 20171128
  Serious: No
  Sender: FDA-Public Use
  Company Number: US-JNJFOC-20170628058

PATIENT
  Sex: Female
  Weight: 65.77 kg

DRUGS (3)
  1. LEVOTHYROXINE. [Concomitant]
     Active Substance: LEVOTHYROXINE
     Indication: HYPOTHYROIDISM
     Route: 065
  2. INVOKANA [Suspect]
     Active Substance: CANAGLIFLOZIN
     Indication: GESTATIONAL DIABETES
     Route: 048
     Dates: start: 2016, end: 2016
  3. CALCITROL [Concomitant]
     Active Substance: CALCITRIOL
     Route: 065

REACTIONS (4)
  - Urinary incontinence [Recovered/Resolved]
  - Exposure during pregnancy [Unknown]
  - Off label use [Unknown]
  - Product use in unapproved indication [Unknown]

NARRATIVE: CASE EVENT DATE: 2016
